FAERS Safety Report 24927439 (Version 2)
Quarter: 2025Q2

REPORT INFORMATION
  Report Type: Report from Study
  Country: US (occurrence: US)
  Receive Date: 20250205
  Receipt Date: 20250531
  Transmission Date: 20250716
  Serious: Yes (Other)
  Sender: STEMLINE THERAPEUTICS
  Company Number: US-STEMLINE THERAPEUTICS B.V.-2025-STML-US000082

PATIENT

DRUGS (1)
  1. ORSERDU [Suspect]
     Active Substance: ELACESTRANT
     Indication: Breast cancer female
     Dosage: 345 MG, DAILY
     Route: 048
     Dates: start: 20241018

REACTIONS (6)
  - Foreign body in throat [Unknown]
  - Gastrooesophageal reflux disease [Recovered/Resolved]
  - Alopecia [Unknown]
  - Hot flush [Unknown]
  - Vomiting [Unknown]
  - Product dose omission in error [Unknown]
